FAERS Safety Report 14152335 (Version 1)
Quarter: 2017Q4

REPORT INFORMATION
  Report Type: Spontaneous
  Country: US (occurrence: None)
  Receive Date: 20171102
  Receipt Date: 20171102
  Transmission Date: 20180321
  Serious: Yes (Hospitalization)
  Sender: FDA-Public Use
  Company Number: None

PATIENT
  Age: 56 Year
  Sex: Male
  Weight: 250 kg

DRUGS (7)
  1. WATSON 10-325 MFG ACTAVIS [Suspect]
     Active Substance: ACETAMINOPHEN\HYDROCODONE BITARTRATE
     Indication: MUSCULOSKELETAL PAIN
     Dosage: 10-325 90 X3 DAILY MOUTH
     Route: 048
     Dates: start: 20170805, end: 20170806
  2. TRAZODONE [Concomitant]
     Active Substance: TRAZODONE HYDROCHLORIDE
  3. WATSON 10-325 MFG ACTAVIS [Suspect]
     Active Substance: ACETAMINOPHEN\HYDROCODONE BITARTRATE
     Indication: SPINAL COLUMN STENOSIS
     Dosage: 10-325 90 X3 DAILY MOUTH
     Route: 048
     Dates: start: 20170805, end: 20170806
  4. LIPITOR [Concomitant]
     Active Substance: ATORVASTATIN CALCIUM
  5. CLANAZAPAM [Concomitant]
  6. CLONIDINE. [Concomitant]
     Active Substance: CLONIDINE
  7. WATSON 10-325 MFG ACTAVIS [Suspect]
     Active Substance: ACETAMINOPHEN\HYDROCODONE BITARTRATE
     Indication: PAIN
     Dosage: 10-325 90 X3 DAILY MOUTH
     Route: 048
     Dates: start: 20170805, end: 20170806

REACTIONS (2)
  - Palpitations [None]
  - Product substitution issue [None]

NARRATIVE: CASE EVENT DATE: 20170805
